FAERS Safety Report 24742228 (Version 2)
Quarter: 2025Q1

REPORT INFORMATION
  Report Type: Spontaneous
  Country: US (occurrence: US)
  Receive Date: 20241217
  Receipt Date: 20250217
  Transmission Date: 20250409
  Serious: Yes (Hospitalization)
  Sender: AUROBINDO
  Company Number: US-AUROBINDO-AUR-APL-2024-060146

PATIENT
  Age: 43 Year
  Sex: Male

DRUGS (2)
  1. DANTROLENE SODIUM [Suspect]
     Active Substance: DANTROLENE SODIUM
     Indication: Hyperpyrexia
     Route: 065
  2. 2,4-DINITROPHENOL [Suspect]
     Active Substance: 2,4-DINITROPHENOL
     Indication: Weight decreased
     Route: 048

REACTIONS (1)
  - Drug ineffective [Unknown]
